FAERS Safety Report 15944776 (Version 1)
Quarter: 2019Q1

REPORT INFORMATION
  Report Type: Spontaneous
  Country: DE (occurrence: DE)
  Receive Date: 20190211
  Receipt Date: 20190211
  Transmission Date: 20190417
  Serious: Yes (Other)
  Sender: FDA-Public Use
  Company Number: DE-AUROBINDO-AUR-APL-2019-007327

PATIENT

DRUGS (1)
  1. ROSUVASTATIN 5 MG FILM COATED TABLET [Suspect]
     Active Substance: ROSUVASTATIN
     Indication: PRODUCT USED FOR UNKNOWN INDICATION
     Dosage: UNK,ROSUVASTATIN 5MG: 1X1 EVERY 2 DAYS
     Route: 048
     Dates: start: 20181022

REACTIONS (3)
  - Lip swelling [Unknown]
  - Pharyngeal oedema [Unknown]
  - Swollen tongue [Unknown]

NARRATIVE: CASE EVENT DATE: 20181110
